FAERS Safety Report 5871741-4 (Version None)
Quarter: 2008Q3

REPORT INFORMATION
  Report Type: 
  Country: None (occurrence: None)
  Receive Date: 20080905
  Receipt Date: 20080903
  Transmission Date: 20090109
  Serious: Yes (Hospitalization)
  Sender: FDA-Public Use
  Company Number: FR-BRISTOL-MYERS SQUIBB COMPANY-14324370

PATIENT
  Age: 85 Year
  Sex: Female

DRUGS (4)
  1. COAPROVEL TABS 300MG/12.5MG [Suspect]
     Dosage: 1 DOSAGE FORM = 300MG/12.5MG.
     Dates: end: 20080107
  2. ZANIDIP [Suspect]
     Dates: end: 20080113
  3. PLAVIX [Concomitant]
  4. FRACTAL [Concomitant]

REACTIONS (3)
  - FALL [None]
  - HYPONATRAEMIA [None]
  - HYPOTENSION [None]
